FAERS Safety Report 14112902 (Version 3)
Quarter: 2017Q4

REPORT INFORMATION
  Report Type: Report from Study
  Country: BR (occurrence: BR)
  Receive Date: 20171022
  Receipt Date: 20171201
  Transmission Date: 20180321
  Serious: Yes (Death)
  Sender: FDA-Public Use
  Company Number: BR-B.I. PHARMACEUTICALS,INC./RIDGEFIELD-2017-BI-045939

PATIENT
  Age: 74 Year
  Sex: Male
  Weight: 94 kg

DRUGS (4)
  1. MOTILIUM [Suspect]
     Active Substance: DOMPERIDONE
     Indication: NAUSEA
     Route: 048
     Dates: start: 201708
  2. OFEV [Suspect]
     Active Substance: NINTEDANIB
     Indication: IDIOPATHIC PULMONARY FIBROSIS
     Route: 048
     Dates: start: 20170720, end: 20170916
  3. OMEPRAZOL [Suspect]
     Active Substance: OMEPRAZOLE
     Indication: GASTROOESOPHAGEAL REFLUX DISEASE
     Route: 048
  4. PANTOPRAZOL [Suspect]
     Active Substance: PANTOPRAZOLE SODIUM
     Indication: GASTROOESOPHAGEAL REFLUX DISEASE
     Route: 048
     Dates: start: 2012

REACTIONS (14)
  - Peripheral swelling [Fatal]
  - Headache [Unknown]
  - Syncope [Unknown]
  - Pain [Unknown]
  - Renal disorder [Fatal]
  - Idiopathic pulmonary fibrosis [Fatal]
  - Diarrhoea [Unknown]
  - Fatigue [Fatal]
  - Decreased appetite [Not Recovered/Not Resolved]
  - Gait disturbance [Fatal]
  - Abnormal faeces [Not Recovered/Not Resolved]
  - Oedema peripheral [Fatal]
  - Vomiting [Unknown]
  - Limb discomfort [Fatal]

NARRATIVE: CASE EVENT DATE: 201707
